FAERS Safety Report 7875917-6 (Version None)
Quarter: 2011Q4

REPORT INFORMATION
  Report Type: 
  Country: None (occurrence: None)
  Receive Date: 20111031
  Receipt Date: 20111018
  Transmission Date: 20120403
  Serious: Yes (Hospitalization)
  Sender: FDA-Public Use
  Company Number: JP-ROCHE-1001508

PATIENT
  Sex: Female
  Weight: 51 kg

DRUGS (8)
  1. DECADRON [Concomitant]
     Indication: BREAST CANCER
     Route: 048
     Dates: start: 20110629, end: 20110901
  2. DOCETAXEL [Concomitant]
     Indication: BREAST CANCER
     Route: 041
     Dates: start: 20110629, end: 20110831
  3. INDOMETHACIN [Concomitant]
     Dosage: DOSAGE IS UNCERTAIN.
     Route: 048
  4. HERCEPTIN [Suspect]
     Indication: BREAST CANCER
     Dosage: DOSAGE IS UNCERTAIN.
     Route: 041
  5. CYCLOPHOSPHAMIDE [Suspect]
     Indication: BREAST CANCER
     Route: 041
     Dates: start: 20110629, end: 20110831
  6. CIPROFLOXACIN HCL [Concomitant]
     Indication: BREAST CANCER
     Route: 048
     Dates: start: 20110704, end: 20110709
  7. CEFCAPENE PIVOXIL HYDROCHLORIDE [Concomitant]
     Indication: BREAST CANCER
     Route: 048
     Dates: start: 20110724, end: 20110910
  8. GRANISETRON [Concomitant]
     Dosage: ADMINISTERING [OMONPAKAFUMEI]
     Route: 041

REACTIONS (2)
  - ORGANISING PNEUMONIA [None]
  - RASH [None]
